FAERS Safety Report 25623974 (Version 1)
Quarter: 2025Q3

REPORT INFORMATION
  Report Type: Spontaneous
  Country: US (occurrence: US)
  Receive Date: 20250730
  Receipt Date: 20250730
  Transmission Date: 20251020
  Serious: No
  Sender: SANOFI AVENTIS
  Company Number: US-SA-2025SA218378

PATIENT
  Sex: Female

DRUGS (1)
  1. DUPIXENT [Suspect]
     Active Substance: DUPILUMAB
     Indication: Nasal polyps
     Dosage: 300 MG, QOW
     Route: 058
     Dates: start: 202504

REACTIONS (9)
  - Glossodynia [Unknown]
  - Condition aggravated [Unknown]
  - Pharyngeal swelling [Unknown]
  - Condition aggravated [Unknown]
  - Mouth ulceration [Unknown]
  - Condition aggravated [Unknown]
  - Lymphadenopathy [Unknown]
  - Condition aggravated [Unknown]
  - Sleep disorder due to a general medical condition [Unknown]

NARRATIVE: CASE EVENT DATE: 20250101
